FAERS Safety Report 15280453 (Version 1)
Quarter: 2018Q3

REPORT INFORMATION
  Report Type: Spontaneous
  Country: US (occurrence: US)
  Receive Date: 20180815
  Receipt Date: 20180815
  Transmission Date: 20181010
  Serious: Yes (Death)
  Sender: FDA-Public Use
  Company Number: US-BAYER-2018-150960

PATIENT
  Sex: Female
  Weight: 59 kg

DRUGS (1)
  1. BAYER ASPIRIN [Suspect]
     Active Substance: ASPIRIN
     Dosage: 2 DF, QD
     Route: 048

REACTIONS (3)
  - Intentional product misuse [None]
  - Cardiac failure [Fatal]
  - Death [Fatal]
